FAERS Safety Report 26001493 (Version 1)
Quarter: 2025Q4

REPORT INFORMATION
  Report Type: Spontaneous
  Country: EU (occurrence: EU)
  Receive Date: 20251105
  Receipt Date: 20251105
  Transmission Date: 20260117
  Serious: Yes (Hospitalization)
  Sender: SANDOZ
  Company Number: None

PATIENT
  Age: 33 Year
  Sex: Female

DRUGS (2)
  1. AMOXICILLIN\CLAVULANIC ACID [Suspect]
     Active Substance: AMOXICILLIN\CLAVULANIC ACID
     Indication: Ear infection
     Dosage: 6 DOSAGE FORM, QD (AMOXICILLINE / ACIDE  CLAVULANIQUE MYLAN 500 MG/62,5 MG  ADULTES, COMPRIM? PELLIC
     Route: 048
     Dates: start: 20250922, end: 20250929
  2. TOBRADEX [Suspect]
     Active Substance: DEXAMETHASONE\TOBRAMYCIN
     Indication: Conjunctivitis
     Dosage: 4 UNK, QD, 4 GOUTTES PAR JOUR
     Route: 031
     Dates: start: 20250922, end: 20250929

REACTIONS (1)
  - Rash maculo-papular [Recovering/Resolving]

NARRATIVE: CASE EVENT DATE: 20251005
